FAERS Safety Report 13518850 (Version 2)
Quarter: 2017Q2

REPORT INFORMATION
  Report Type: Spontaneous
  Country: US (occurrence: US)
  Receive Date: 20170505
  Receipt Date: 20170607
  Transmission Date: 20170830
  Serious: Yes (Death)
  Sender: FDA-Public Use
  Company Number: PHEH2017US013148

PATIENT
  Sex: Female
  Weight: 80 kg

DRUGS (1)
  1. VOTRIENT [Suspect]
     Active Substance: PAZOPANIB HYDROCHLORIDE
     Indication: OSTEOSARCOMA
     Dosage: 4 DF, QD
     Route: 048
     Dates: start: 20170407

REACTIONS (3)
  - Metastases to lung [Fatal]
  - Osteosarcoma [Fatal]
  - Product use in unapproved indication [Unknown]
